FAERS Safety Report 6677351-3 (Version None)
Quarter: 2010Q2

REPORT INFORMATION
  Report Type: 
  Country: None (occurrence: None)
  Receive Date: 20100412
  Receipt Date: 20100408
  Transmission Date: 20101027
  Serious: Yes (Hospitalization)
  Sender: FDA-Public Use
  Company Number: GXKR2010DE01263

PATIENT
  Age: 66 Year
  Sex: Male
  Weight: 83.6 kg

DRUGS (16)
  1. THIAMAZOLE (NGX) [Suspect]
     Indication: HYPERTHYROIDISM
     Dosage: 15 MG, QD
     Route: 048
     Dates: start: 20090701
  2. PREDNISOLONE [Interacting]
     Indication: RENAL TRANSPLANT
     Dosage: 5 MG, QD
     Route: 048
     Dates: start: 20090701
  3. SANDIMMUNE [Suspect]
     Indication: RENAL TRANSPLANT
     Dosage: 225 MG, UNK
     Route: 048
     Dates: start: 20090701
  4. SANDIMMUNE [Suspect]
     Dosage: 100 MG, BID
     Dates: start: 20091113
  5. SANDIMMUNE [Suspect]
     Dosage: 75 MG, BID
     Dates: start: 20091203
  6. CELLCEPT [Suspect]
     Indication: RENAL TRANSPLANT
     Dosage: 1000 MG, BID
     Route: 048
     Dates: start: 20090701, end: 20091118
  7. VALCYTE [Suspect]
     Indication: OPPORTUNISTIC INFECTION PROPHYLAXIS
     Dosage: 450 MG, QD
     Route: 048
     Dates: start: 20091002
  8. PANTOPRAZOLE SODIUM [Concomitant]
  9. CARVEDILOL [Concomitant]
  10. LOCOL [Concomitant]
  11. MIRCERA [Concomitant]
  12. BICANORM (SODIUM BICARBONATE) [Concomitant]
  13. CALCIMAGON-D3 [Concomitant]
  14. INSULIN [Concomitant]
  15. ACETYLSALICYLIC ACID [Concomitant]
  16. PLAVIX [Concomitant]

REACTIONS (2)
  - CYTOMEGALOVIRUS INFECTION [None]
  - LEUKOPENIA [None]
